FAERS Safety Report 13757193 (Version 1)
Quarter: 2017Q3

REPORT INFORMATION
  Report Type: Spontaneous
  Country: US (occurrence: US)
  Receive Date: 20170714
  Receipt Date: 20170714
  Transmission Date: 20171127
  Serious: Yes (Hospitalization)
  Sender: FDA-Public Use
  Company Number: None

PATIENT
  Age: 30 Year
  Sex: Female
  Weight: 54 kg

DRUGS (2)
  1. FERAHEME [Suspect]
     Active Substance: FERUMOXYTOL NON-STOICHIOMETRIC MAGNETITE
     Indication: ANAEMIA
     Dosage: ?          OTHER DOSE:MG;OTHER FREQUENCY:ONCE;?
     Route: 040
     Dates: start: 20170710, end: 20170710
  2. NS [Concomitant]
     Active Substance: SODIUM CHLORIDE

REACTIONS (6)
  - Chest discomfort [None]
  - Infusion related reaction [None]
  - Hypotension [None]
  - Fatigue [None]
  - Nausea [None]
  - Loss of consciousness [None]

NARRATIVE: CASE EVENT DATE: 20170710
